FAERS Safety Report 4703495-9 (Version None)
Quarter: 2005Q2

REPORT INFORMATION
  Report Type: 
  Country: None (occurrence: None)
  Receive Date: 20050628
  Receipt Date: 20050615
  Transmission Date: 20051028
  Serious: No
  Sender: FDA-Public Use
  Company Number: USA050291756

PATIENT
  Age: 75 Year
  Sex: Female
  Weight: 60 kg

DRUGS (11)
  1. FORTEO [Suspect]
     Indication: OSTEOPOROSIS
     Dosage: 20 UG/1 DAY
     Dates: start: 20050124, end: 20050220
  2. FOSAMAX [Concomitant]
  3. SYNTHROID [Concomitant]
  4. METOPROLOL [Concomitant]
  5. XANAX [Concomitant]
  6. ZOCOR [Concomitant]
  7. PROTONIX [Concomitant]
  8. CARAFATE [Concomitant]
  9. CALCIUM GLUCONATE [Concomitant]
  10. MULTI-VITAMIN [Concomitant]
  11. PREDNISONE [Concomitant]

REACTIONS (5)
  - CHEST PAIN [None]
  - FATIGUE [None]
  - NAUSEA [None]
  - PEPTIC ULCER [None]
  - PHARMACEUTICAL PRODUCT COMPLAINT [None]
